FAERS Safety Report 6257148-9 (Version None)
Quarter: 2009Q3

REPORT INFORMATION
  Report Type: 
  Country: None (occurrence: None)
  Receive Date: 20090701
  Receipt Date: 20090701
  Transmission Date: 20100115
  Serious: No
  Sender: FDA-Public Use
  Company Number: None

PATIENT
  Age: 40 Year
  Sex: Female

DRUGS (4)
  1. CYCLOSPORINE [Suspect]
     Indication: PANCREAS TRANSPLANT
     Dosage: 100MG TWICE DAILY/049
     Dates: start: 20090511, end: 20090623
  2. NEXIUM [Concomitant]
  3. BACTRIM [Concomitant]
  4. REGLAN [Concomitant]

REACTIONS (1)
  - MEDICAL DEVICE COMPLICATION [None]
